FAERS Safety Report 6644882-1 (Version None)
Quarter: 2010Q1

REPORT INFORMATION
  Report Type: 
  Country: None (occurrence: None)
  Receive Date: 20100317
  Receipt Date: 20100218
  Transmission Date: 20100710
  Serious: Yes (Other)
  Sender: FDA-Public Use
  Company Number: AUR-APL-2010-00713

PATIENT
  Age: 55 Year
  Sex: Male

DRUGS (7)
  1. METFORMIN (GLUCOPHAGE) [Suspect]
     Indication: TYPE 2 DIABETES MELLITUS
  2. LISINOPRIL AND HYDROCHLOROTHIAZIDE [Suspect]
     Dosage: 1DF, DAILY
  3. ONGLYZA              5MG TABS (SAXAGLIPTIN) [Suspect]
     Indication: TYPE 2 DIABETES MELLITUS
     Dosage: 5MG-DAILY
     Dates: start: 20091101
  4. GLIPIZIDE [Concomitant]
  5. LOVAZA [Concomitant]
  6. ASPIRIN [Concomitant]
  7. LIPITOR [Concomitant]

REACTIONS (1)
  - BLOOD CREATININE INCREASED [None]
